FAERS Safety Report 9514536 (Version 2)
Quarter: 2013Q3

REPORT INFORMATION
  Report Type: Report from Study
  Country: JP (occurrence: JP)
  Receive Date: 20130911
  Receipt Date: 20130911
  Transmission Date: 20140515
  Serious: Yes (Hospitalization)
  Sender: FDA-Public Use
  Company Number: JP-BRISTOL-MYERS SQUIBB COMPANY-15741028

PATIENT
  Age: 65 Year
  Sex: Male
  Weight: 64.5 kg

DRUGS (19)
  1. ARIPIPRAZOLE IM DEPOT [Suspect]
     Indication: SCHIZOPHRENIA
     Dates: start: 20110408, end: 20110505
  2. ARIPIPRAZOLE [Suspect]
     Indication: SCHIZOPHRENIA
     Route: 048
     Dates: start: 20110311
  3. BROTIZOLAM [Concomitant]
     Dosage: TAB
     Dates: start: 20110311
  4. HICEE [Concomitant]
     Dosage: GRANULE
     Dates: start: 20080905
  5. GANATON [Concomitant]
     Dosage: GANATON TAB
     Dates: start: 20090427
  6. OMEPRAZOL [Concomitant]
     Dosage: TABLET
     Dates: start: 20090515
  7. CAMPHOR [Concomitant]
     Dosage: OINTMENT
     Dates: start: 20110322, end: 20110405
  8. DIPHENHYDRAMINE HCL [Concomitant]
     Dosage: OINTMENT
     Dates: start: 20110322, end: 20110405
  9. MENTHOL [Concomitant]
     Dosage: OINTMENT
     Dates: start: 20110322, end: 20110405
  10. METHYL SALICYLATE [Concomitant]
     Dosage: OINTMENT
     Dates: start: 20110322, end: 20110405
  11. LOXONIN [Concomitant]
     Dates: start: 20110328, end: 20110407
  12. LACTOSE [Concomitant]
     Dosage: GRANULE
     Dates: start: 20110330, end: 20110505
  13. AFLOQUALONE [Concomitant]
     Dosage: TABLET
     Dates: start: 20110408, end: 20110506
  14. NIZORAL CREAM [Concomitant]
     Dosage: CREAM
     Dates: start: 20110226
  15. SENNOSIDES A AND B [Concomitant]
     Dosage: TABS
     Dates: start: 20110308
  16. MUCOSTA [Concomitant]
     Dosage: TABS
     Dates: start: 20090427
  17. BENZALIN [Concomitant]
     Dosage: TAB
     Dates: start: 20110506
  18. DIAZEPAM [Concomitant]
     Dates: start: 20110506
  19. SALICYLIC ACID [Concomitant]
     Dosage: SPEEL PLASTER.TRANSDERMAL PATCH
     Route: 062
     Dates: start: 20110513, end: 20110514

REACTIONS (1)
  - Schizophrenia [Recovered/Resolved]
